FAERS Safety Report 4627263-1 (Version None)
Quarter: 2005Q1

REPORT INFORMATION
  Report Type: 
  Country: None (occurrence: None)
  Receive Date: 20050331
  Receipt Date: 20050317
  Transmission Date: 20050727
  Serious: Yes (Other)
  Sender: FDA-Public Use
  Company Number: 213266

PATIENT
  Sex: Male

DRUGS (1)
  1. MABTHERA (RITUXIMAB) CONC FOR  SOLUTION FOR INFUSION [Suspect]
     Dosage: INTRAVENOUS
     Route: 042
     Dates: start: 20050315, end: 20050315

REACTIONS (2)
  - HYPERTENSION [None]
  - TRANSIENT ISCHAEMIC ATTACK [None]
